FAERS Safety Report 4587204-2 (Version None)
Quarter: 2005Q1

REPORT INFORMATION
  Report Type: 
  Country: None (occurrence: None)
  Receive Date: 20050215
  Receipt Date: 19950519
  Transmission Date: 20050727
  Serious: Yes (Other)
  Sender: FDA-Public Use
  Company Number: KII-1995-0015120

PATIENT
  Age: 31 Year
  Sex: Male

DRUGS (1)
  1. MS CONTIN [Suspect]
     Indication: CANCER PAIN

REACTIONS (2)
  - CARDIO-RESPIRATORY ARREST [None]
  - WHITE BLOOD CELL COUNT DECREASED [None]
